FAERS Safety Report 12697837 (Version 1)
Quarter: 2016Q3

REPORT INFORMATION
  Report Type: Spontaneous
  Country: US (occurrence: None)
  Receive Date: 20160829
  Receipt Date: 20160829
  Transmission Date: 20161109
  Serious: Yes (Hospitalization)
  Sender: FDA-Public Use
  Company Number: None

PATIENT
  Age: 15 Year
  Sex: Female
  Weight: 60.6 kg

DRUGS (3)
  1. AZATHIORINE [Concomitant]
  2. PREDNISONE. [Concomitant]
     Active Substance: PREDNISONE
  3. INFLIXIMAB, 100 MG VIAL JANSSEN [Suspect]
     Active Substance: INFLIXIMAB
     Indication: COLITIS ULCERATIVE
     Dosage: 5.8 MG/KG EVERY TWO WEEKS INTRAVENOUS (NOT OTHERWISE SPECIFIED)
     Route: 042
     Dates: start: 20160621, end: 20160707

REACTIONS (2)
  - Immunosuppression [None]
  - Meningitis listeria [None]

NARRATIVE: CASE EVENT DATE: 20160729
